FAERS Safety Report 6472980-4 (Version None)
Quarter: 2009Q4

REPORT INFORMATION
  Report Type: 
  Country: None (occurrence: None)
  Receive Date: 20091204
  Receipt Date: 20091124
  Transmission Date: 20100525
  Serious: Yes (Other)
  Sender: FDA-Public Use
  Company Number: US-BIOGENIDEC-2009BI024633

PATIENT
  Age: 48 Year
  Sex: Male
  Weight: 78 kg

DRUGS (11)
  1. TYSABRI [Suspect]
     Indication: MULTIPLE SCLEROSIS
     Route: 042
     Dates: start: 20090724
  2. KEPPRA [Concomitant]
     Indication: COMPLEX PARTIAL SEIZURES
     Route: 048
     Dates: start: 20080514, end: 20090101
  3. KEPPRA [Concomitant]
     Route: 048
     Dates: start: 20080514, end: 20090130
  4. KEPPRA [Concomitant]
     Route: 048
     Dates: start: 20090130
  5. SAW PALMETTO [Concomitant]
  6. VITAMINS NOS [Concomitant]
  7. CALCIUM WITH VITAMIN D [Concomitant]
  8. MULTI-VITAMIN [Concomitant]
  9. ASCORBIC ACID [Concomitant]
  10. VITAMIN E [Concomitant]
  11. FISH OIL [Concomitant]

REACTIONS (8)
  - ASTHENIA [None]
  - COMPLEX PARTIAL SEIZURES [None]
  - CONVULSION [None]
  - FATIGUE [None]
  - NOCTURIA [None]
  - RASH [None]
  - TEMPERATURE INTOLERANCE [None]
  - WEIGHT DECREASED [None]
